FAERS Safety Report 8276696-3 (Version None)
Quarter: 2012Q2

REPORT INFORMATION
  Report Type: 
  Country: None (occurrence: None)
  Receive Date: 20120412
  Receipt Date: 20120412
  Transmission Date: 20120825
  Serious: Yes (Life-Threatening, Hospitalization, Disabling, Other)
  Sender: FDA-Public Use
  Company Number: None

PATIENT
  Age: 73 Year
  Sex: Female
  Weight: 95 kg

DRUGS (1)
  1. EXJADE [Suspect]
     Dosage: 1500 MG
     Route: 048

REACTIONS (10)
  - PANCREATITIS NECROTISING [None]
  - OESOPHAGITIS [None]
  - DUODENAL ULCER [None]
  - GASTROINTESTINAL PERFORATION [None]
  - PEPTIC ULCER [None]
  - DUODENITIS [None]
  - GASTROINTESTINAL NEOPLASM [None]
  - OESOPHAGEAL ULCER [None]
  - HEPATIC FAILURE [None]
  - GASTROINTESTINAL ISCHAEMIA [None]
